FAERS Safety Report 4647141-1 (Version None)
Quarter: 2005Q2

REPORT INFORMATION
  Report Type: 
  Country: None (occurrence: None)
  Receive Date: 20050428
  Receipt Date: 20050419
  Transmission Date: 20051028
  Serious: Yes (Hospitalization)
  Sender: FDA-Public Use
  Company Number: CA-JNJFOC-20050205646

PATIENT
  Age: 26 Year
  Sex: Male

DRUGS (3)
  1. REMICADE [Suspect]
     Indication: CROHN'S DISEASE
     Route: 042
  2. REMERON [Suspect]
     Indication: DEPRESSION
  3. CELEXA [Suspect]
     Indication: DEPRESSION

REACTIONS (2)
  - DEPRESSION [None]
  - HALLUCINATION [None]
